FAERS Safety Report 6504709-5 (Version None)
Quarter: 2009Q4

REPORT INFORMATION
  Report Type: 
  Country: None (occurrence: None)
  Receive Date: 20091218
  Receipt Date: 20091026
  Transmission Date: 20100525
  Serious: No
  Sender: FDA-Public Use
  Company Number: A0813392A

PATIENT
  Age: 61 Year
  Sex: Male

DRUGS (4)
  1. PROMACTA [Suspect]
     Indication: IDIOPATHIC THROMBOCYTOPENIC PURPURA
     Dosage: 50MG PER DAY
     Route: 048
     Dates: start: 20091021
  2. PREDNISONE [Concomitant]
  3. PREVACID [Concomitant]
  4. AMBIEN [Concomitant]

REACTIONS (1)
  - RASH [None]
